FAERS Safety Report 18436688 (Version 2)
Quarter: 2020Q4

REPORT INFORMATION
  Report Type: Spontaneous
  Country: JP (occurrence: JP)
  Receive Date: 20201028
  Receipt Date: 20201029
  Transmission Date: 20210114
  Serious: Yes (Hospitalization)
  Sender: FDA-Public Use
  Company Number: JP-EISAI MEDICAL RESEARCH-EC-2020-082605

PATIENT
  Age: 78 Year
  Sex: Female

DRUGS (5)
  1. AMENALIEF [Concomitant]
     Active Substance: AMENAMEVIR
     Indication: HERPES ZOSTER
     Dosage: DOSE AND FREQUENCY UNKNOWN
     Route: 048
     Dates: start: 20201019, end: 20201020
  2. LENVIMA [Suspect]
     Active Substance: LENVATINIB
     Indication: HEPATOCELLULAR CARCINOMA
     Route: 048
     Dates: start: 20191023, end: 20201021
  3. AZILVA [Concomitant]
     Active Substance: AZILSARTAN KAMEDOXOMIL
     Indication: HYPERTENSION
     Dosage: DOSE AND FREQUENCY UNKNOWN
     Route: 048
     Dates: end: 20201020
  4. THYRADIN-S [Concomitant]
     Active Substance: LEVOTHYROXINE
     Indication: HYPOTHYROIDISM
     Dosage: DOSE AND FREQUENCY UNKNOWN
     Route: 048
     Dates: start: 2020
  5. NORVASC [Concomitant]
     Active Substance: AMLODIPINE BESYLATE
     Indication: HYPERTENSION
     Dosage: DOSE AND FREQUENCY UNKNOWN
     Route: 048
     Dates: end: 20201020

REACTIONS (3)
  - Altered state of consciousness [Recovered/Resolved]
  - Hypothyroidism [Unknown]
  - Herpes zoster [Unknown]

NARRATIVE: CASE EVENT DATE: 2020
